FAERS Safety Report 8876503 (Version 4)
Quarter: 2013Q1

REPORT INFORMATION
  Report Type: Report from Study
  Country: US (occurrence: US)
  Receive Date: 20121030
  Receipt Date: 20130301
  Transmission Date: 20140127
  Serious: No
  Sender: FDA-Public Use
  Company Number: US-VERTEX PHARMACEUTICAL INC.-2012-023728

PATIENT
  Age: 28 Year
  Sex: Male
  Weight: 98.2 kg

DRUGS (12)
  1. VX-770 [Suspect]
     Indication: CYSTIC FIBROSIS
     Dosage: 150 MG, BID
     Route: 048
     Dates: start: 2012
  2. VX-770 [Suspect]
     Dosage: 150 MG, QD
     Route: 048
     Dates: start: 20120421, end: 2012
  3. TACROLIMUS [Concomitant]
     Dosage: 1 MG, BID
     Route: 048
  4. MULTIVITAMIN [Concomitant]
  5. VITAMIN E [Concomitant]
  6. MIRALAX [Concomitant]
  7. BACTROBAN [Concomitant]
     Dosage: UNK, PRN
  8. CELLCEPT [Concomitant]
     Dosage: 1000 MG, BID
     Route: 048
  9. NOVOLOG [Concomitant]
     Dosage: 1 UNK, UNK
     Route: 058
  10. LANTUS [Concomitant]
     Dosage: 10 UNK, BID
     Route: 058
  11. ERGOCALCIFEROL [Concomitant]
     Dosage: 50000 UNK, QW
     Route: 048
  12. ZENPEP [Concomitant]

REACTIONS (2)
  - Asthenia [Recovered/Resolved]
  - Treatment noncompliance [Unknown]
